FAERS Safety Report 12269976 (Version 1)
Quarter: 2016Q2

REPORT INFORMATION
  Report Type: Spontaneous
  Country: US (occurrence: US)
  Receive Date: 20160415
  Receipt Date: 20160415
  Transmission Date: 20160815
  Serious: Yes (Hospitalization)
  Sender: FDA-Public Use
  Company Number: US-ZYDUS-010613

PATIENT
  Age: 31 Year
  Sex: Female

DRUGS (5)
  1. MIDAZOLAM/MIDAZOLAM HYDROCHLORIDE/MIDAZOLAM MALEATE [Concomitant]
     Indication: HAEMODYNAMIC INSTABILITY
     Route: 065
  2. DIAZEPAM. [Concomitant]
     Active Substance: DIAZEPAM
     Indication: HAEMODYNAMIC INSTABILITY
     Route: 065
  3. VECURONIUM [Concomitant]
     Active Substance: VECURONIUM BROMIDE
     Indication: HAEMODYNAMIC INSTABILITY
     Route: 065
  4. AMIODARONE [Suspect]
     Active Substance: AMIODARONE
     Indication: HAEMODYNAMIC INSTABILITY
     Route: 065
  5. LABETALOL/LABETALOL HYDROCHLORIDE [Concomitant]
     Indication: HAEMODYNAMIC INSTABILITY
     Route: 065

REACTIONS (2)
  - Exposure during pregnancy [Unknown]
  - Treatment failure [Unknown]
